FAERS Safety Report 4365130-1 (Version None)
Quarter: 2004Q2

REPORT INFORMATION
  Report Type: 
  Country: None (occurrence: None)
  Receive Date: 20040521
  Receipt Date: 20040512
  Transmission Date: 20050107
  Serious: Yes (Disabling)
  Sender: FDA-Public Use
  Company Number: K200400642

PATIENT
  Age: 42 Year
  Sex: Male

DRUGS (2)
  1. ALTACE [Suspect]
     Indication: HYPERTENSION
     Dosage: 1 TABLET, QD, ORAL
     Route: 048
     Dates: start: 19980701
  2. HYDROCHLOROTHIAZIDE [Suspect]
     Indication: HYPERTENSION
     Dosage: 1 TABLET, QD, ORAL
     Route: 048
     Dates: start: 19980701

REACTIONS (2)
  - AZOOSPERMIA [None]
  - INFLUENZA [None]
